FAERS Safety Report 15640556 (Version 1)
Quarter: 2018Q4

REPORT INFORMATION
  Report Type: Spontaneous
  Country: US (occurrence: US)
  Receive Date: 20181120
  Receipt Date: 20181120
  Transmission Date: 20190205
  Serious: No
  Sender: FDA-Public Use
  Company Number: US-PFIZER INC-2018472633

PATIENT
  Age: 64 Year
  Sex: Female

DRUGS (1)
  1. CYTOMEL [Suspect]
     Active Substance: LIOTHYRONINE SODIUM
     Dosage: UNK

REACTIONS (5)
  - Blood calcitonin increased [Unknown]
  - Blood parathyroid hormone increased [Unknown]
  - Myalgia [Unknown]
  - Parathyroid disorder [Unknown]
  - Alopecia [Unknown]
